FAERS Safety Report 21695799 (Version 2)
Quarter: 2023Q2

REPORT INFORMATION
  Report Type: Report from Study
  Country: US (occurrence: US)
  Receive Date: 20221207
  Receipt Date: 20230404
  Transmission Date: 20230722
  Serious: Yes (Other)
  Sender: FDA-Public Use
  Company Number: US-ABBVIE-4193475

PATIENT
  Sex: Female

DRUGS (1)
  1. HUMIRA [Suspect]
     Active Substance: ADALIMUMAB
     Indication: Rheumatoid arthritis
     Dosage: CITRATE FREE
     Route: 058
     Dates: start: 20220702

REACTIONS (9)
  - Tooth infection [Recovering/Resolving]
  - Palmoplantar pustulosis [Unknown]
  - Injection site inflammation [Not Recovered/Not Resolved]
  - Tooth fracture [Recovering/Resolving]
  - Injection site swelling [Not Recovered/Not Resolved]
  - Injection site pain [Unknown]
  - Swelling [Recovered/Resolved with Sequelae]
  - Injection site discolouration [Unknown]
  - Skin disorder [Unknown]
